FAERS Safety Report 7295966-9 (Version None)
Quarter: 2011Q1

REPORT INFORMATION
  Report Type: 
  Country: None (occurrence: None)
  Receive Date: 20110216
  Receipt Date: 20110111
  Transmission Date: 20110831
  Serious: No
  Sender: FDA-Public Use
  Company Number: US-ABBOTT-11P-163-0697035-00

PATIENT
  Sex: Male
  Weight: 95.34 kg

DRUGS (2)
  1. SIMCOR [Suspect]
     Dosage: 1000/20MG, TWICE DAILY
     Dates: start: 20110101
  2. SIMCOR [Suspect]
     Indication: HIGH DENSITY LIPOPROTEIN INCREASED
     Dosage: 1000/20MG
     Dates: start: 20101101, end: 20110101

REACTIONS (1)
  - HEADACHE [None]
